FAERS Safety Report 5385294-0 (Version None)
Quarter: 2007Q3

REPORT INFORMATION
  Report Type: 
  Country: None (occurrence: None)
  Receive Date: 20070712
  Receipt Date: 20070702
  Transmission Date: 20080115
  Serious: Yes (Other)
  Sender: FDA-Public Use
  Company Number: PT-JNJFOC-20070701920

PATIENT
  Age: 50 Year
  Sex: Female

DRUGS (2)
  1. TOPAMAX [Suspect]
     Indication: WEIGHT LOSS DIET
     Route: 048
     Dates: start: 20070101
  2. TOPAMAX [Suspect]
     Indication: MIGRAINE PROPHYLAXIS
     Route: 048
     Dates: start: 20070101

REACTIONS (2)
  - BILIARY TRACT DISORDER [None]
  - GAMMA-GLUTAMYLTRANSFERASE INCREASED [None]
